FAERS Safety Report 15730279 (Version 1)
Quarter: 2018Q4

REPORT INFORMATION
  Report Type: Spontaneous
  Country: US (occurrence: US)
  Receive Date: 20181216
  Receipt Date: 20181216
  Transmission Date: 20190205
  Serious: Yes (Other)
  Sender: FDA-Public Use
  Company Number: None

PATIENT
  Age: 74 Year
  Sex: Female
  Weight: 64.8 kg

DRUGS (4)
  1. TRAMADOL. [Suspect]
     Active Substance: TRAMADOL
     Indication: PAIN MANAGEMENT
     Dosage: ?          QUANTITY:1 CAPSULE(S);?
     Route: 048
     Dates: start: 20181212, end: 20181212
  2. AMLODIPINE [Concomitant]
     Active Substance: AMLODIPINE BESYLATE
  3. LOSARTAN. [Concomitant]
     Active Substance: LOSARTAN
  4. WESTHROID [Concomitant]
     Active Substance: THYROGLOBULIN

REACTIONS (8)
  - Agitation [None]
  - Pruritus [None]
  - Hallucination, auditory [None]
  - Confusional state [None]
  - Abnormal behaviour [None]
  - Hallucination, visual [None]
  - Disorientation [None]
  - Thinking abnormal [None]

NARRATIVE: CASE EVENT DATE: 20181212
